FAERS Safety Report 21134972 (Version 1)
Quarter: 2022Q3

REPORT INFORMATION
  Report Type: Spontaneous
  Country: CZ (occurrence: CZ)
  Receive Date: 20220727
  Receipt Date: 20220727
  Transmission Date: 20221027
  Serious: Yes (Other)
  Sender: FDA-Public Use
  Company Number: CZ-CHEPLA-2022006474

PATIENT
  Age: 38 Year
  Sex: Female

DRUGS (4)
  1. CLONAZEPAM [Suspect]
     Active Substance: CLONAZEPAM
     Indication: Epilepsy
  2. VALPROIC ACID [Suspect]
     Active Substance: VALPROIC ACID
     Indication: Epilepsy
  3. PRIMIDONE [Suspect]
     Active Substance: PRIMIDONE
     Indication: Epilepsy
  4. ZONISAMIDE [Suspect]
     Active Substance: ZONISAMIDE
     Indication: Epilepsy

REACTIONS (5)
  - Premature separation of placenta [Recovered/Resolved]
  - Maternal exposure during pregnancy [Recovered/Resolved]
  - Caesarean section [Recovered/Resolved]
  - Epilepsy [Unknown]
  - Premature delivery [Recovered/Resolved]
